FAERS Safety Report 4962830-7 (Version None)
Quarter: 2006Q1

REPORT INFORMATION
  Report Type: 
  Country: None (occurrence: None)
  Receive Date: 20060331
  Receipt Date: 20060316
  Transmission Date: 20060701
  Serious: Yes (Other)
  Sender: FDA-Public Use
  Company Number: DE200603005213

PATIENT
  Age: 70 Year
  Sex: Female

DRUGS (5)
  1. GEMZAR [Suspect]
     Indication: NON-SMALL CELL LUNG CANCER
     Dosage: 1000 MG/M2, INTRAVENOUS
     Route: 042
  2. CISPLATIN [Concomitant]
  3. SPIRIVA [Concomitant]
  4. FORMOTEROL [Concomitant]
  5. DIURETICS [Concomitant]

REACTIONS (2)
  - DEHYDRATION [None]
  - THROMBOCYTHAEMIA [None]
